FAERS Safety Report 18030973 (Version 3)
Quarter: 2021Q2

REPORT INFORMATION
  Report Type: Spontaneous
  Country: US (occurrence: US)
  Receive Date: 20200716
  Receipt Date: 20210402
  Transmission Date: 20210717
  Serious: Yes (Other)
  Sender: FDA-Public Use
  Company Number: US-GLAXOSMITHKLINE-US2020132789

PATIENT
  Sex: Male

DRUGS (2)
  1. ZANTAC [Suspect]
     Active Substance: RANITIDINE HYDROCHLORIDE
     Dosage: 150 MG BOTH,FROM 1 OR 2 DAILY AND MORE IF NEEDED.
     Route: 065
     Dates: start: 199301, end: 201901
  2. ZANTAC [Suspect]
     Active Substance: RANITIDINE HYDROCHLORIDE
     Dosage: 150 MG BOTH,FROM 1 OR 2 DAILY AND MORE IF NEEDED.
     Route: 065
     Dates: start: 199301, end: 201901

REACTIONS (1)
  - Bladder cancer [Unknown]
